FAERS Safety Report 24901069 (Version 5)
Quarter: 2025Q3

REPORT INFORMATION
  Report Type: Spontaneous
  Country: US (occurrence: US)
  Receive Date: 20250129
  Receipt Date: 20250919
  Transmission Date: 20251021
  Serious: No
  Sender: TRAVERE THERAPEUTICS
  Company Number: US-TRAVERE-2025TVT00096

PATIENT
  Age: 39 Year
  Sex: Male

DRUGS (2)
  1. FILSPARI [Suspect]
     Active Substance: SPARSENTAN
     Indication: IgA nephropathy
     Route: 048
     Dates: start: 20241130
  2. FILSPARI [Suspect]
     Active Substance: SPARSENTAN
     Route: 048
     Dates: start: 20241202

REACTIONS (7)
  - Dizziness [Unknown]
  - Parosmia [None]
  - Anosmia [Unknown]
  - Blood potassium increased [Unknown]
  - Blood urea increased [Unknown]
  - Glomerular filtration rate abnormal [Unknown]
  - Proteinuria [Unknown]
